FAERS Safety Report 12735096 (Version 2)
Quarter: 2017Q1

REPORT INFORMATION
  Report Type: Spontaneous
  Country: US (occurrence: US)
  Receive Date: 20160913
  Receipt Date: 20170330
  Transmission Date: 20170428
  Serious: No
  Sender: FDA-Public Use
  Company Number: US-TEVA-681381USA

PATIENT
  Age: 69 Year
  Sex: Female

DRUGS (7)
  1. VITAMIN E [Concomitant]
     Active Substance: .ALPHA.-TOCOPHEROL
  2. POTASSIUM [Concomitant]
     Active Substance: POTASSIUM
  3. AMPYRA [Concomitant]
     Active Substance: DALFAMPRIDINE
  4. COPAXONE [Suspect]
     Active Substance: GLATIRAMER ACETATE
     Route: 058
  5. NORTRIPTYLINE [Concomitant]
     Active Substance: NORTRIPTYLINE
  6. NIFEDIPINE. [Concomitant]
     Active Substance: NIFEDIPINE
  7. VITAMIN D [Concomitant]
     Active Substance: CHOLECALCIFEROL

REACTIONS (2)
  - Drug dose omission [Unknown]
  - Balance disorder [Unknown]

NARRATIVE: CASE EVENT DATE: 201607
